FAERS Safety Report 6753582-9 (Version None)
Quarter: 2010Q2

REPORT INFORMATION
  Report Type: 
  Country: None (occurrence: None)
  Receive Date: 20100603
  Receipt Date: 20100520
  Transmission Date: 20101027
  Serious: Yes (Other)
  Sender: FDA-Public Use
  Company Number: PHHY2010US33144

PATIENT
  Sex: Female
  Weight: 125 kg

DRUGS (3)
  1. ZOMETA [Suspect]
     Indication: OSTEOPOROSIS
     Dosage: 5MG+1
     Route: 042
     Dates: start: 20100408
  2. CALCIMATE [Concomitant]
  3. CALCIFEROL [Concomitant]
     Dosage: 50000

REACTIONS (3)
  - ARTHRALGIA [None]
  - JOINT SWELLING [None]
  - LEUKOCYTOCLASTIC VASCULITIS [None]
